FAERS Safety Report 5453126-8 (Version None)
Quarter: 2007Q3

REPORT INFORMATION
  Report Type: 
  Country: None (occurrence: None)
  Receive Date: 20070914
  Receipt Date: 20070905
  Transmission Date: 20080115
  Serious: Yes (Other)
  Sender: FDA-Public Use
  Company Number: US-PFIZER INC-2007073887

PATIENT
  Sex: Male

DRUGS (5)
  1. GEODON [Suspect]
     Indication: ILL-DEFINED DISORDER
     Dosage: DAILY DOSE:120MG
     Route: 048
  2. HYDROCHLOROTHIAZIDE [Concomitant]
  3. METFORMIN HCL [Concomitant]
  4. PROVIGIL [Concomitant]
  5. FLUOXETINE HCL [Concomitant]

REACTIONS (1)
  - ABNORMAL SLEEP-RELATED EVENT [None]
